FAERS Safety Report 8406276-8 (Version None)
Quarter: 2012Q2

REPORT INFORMATION
  Report Type: 
  Country: None (occurrence: None)
  Receive Date: 20120604
  Receipt Date: 20120529
  Transmission Date: 20120825
  Serious: Yes (Hospitalization)
  Sender: FDA-Public Use
  Company Number: PHHY2012JP039675

PATIENT
  Age: 77 Year
  Sex: Male

DRUGS (3)
  1. FULPEN [Concomitant]
     Dosage: 3 DF, UNK
     Route: 048
     Dates: start: 20120306, end: 20120508
  2. DIOVAN [Suspect]
     Indication: HYPERTENSION
     Dosage: 40 MG, DAILY
     Route: 048
     Dates: start: 20120306, end: 20120508
  3. BISOPROLOL FUMARATE [Concomitant]
     Dosage: 5 MG, UNK
     Route: 048
     Dates: start: 20120306

REACTIONS (3)
  - LYMPHOCYTE COUNT INCREASED [None]
  - INTERSTITIAL LUNG DISEASE [None]
  - C-REACTIVE PROTEIN INCREASED [None]
